FAERS Safety Report 8262815-1 (Version None)
Quarter: 2012Q2

REPORT INFORMATION
  Report Type: 
  Country: None (occurrence: None)
  Receive Date: 20120405
  Receipt Date: 20120402
  Transmission Date: 20120825
  Serious: Yes (Life-Threatening, Other)
  Sender: FDA-Public Use
  Company Number: US-JNJFOC-20120304707

PATIENT
  Sex: Male
  Weight: 83.92 kg

DRUGS (3)
  1. XARELTO [Suspect]
     Indication: THROMBOSIS PROPHYLAXIS
     Route: 048
     Dates: start: 20120129, end: 20120215
  2. XARELTO [Suspect]
     Indication: SURGERY
     Route: 048
     Dates: start: 20120129, end: 20120215
  3. NORCO [Concomitant]
     Indication: PAIN
     Dosage: DOSE 10/325 MG
     Dates: start: 20120129

REACTIONS (2)
  - PULMONARY EMBOLISM [None]
  - DEEP VEIN THROMBOSIS [None]
